FAERS Safety Report 5031156-8 (Version None)
Quarter: 2006Q2

REPORT INFORMATION
  Report Type: 
  Country: None (occurrence: None)
  Receive Date: 20060619
  Receipt Date: 20060619
  Transmission Date: 20061013
  Serious: Yes (Other)
  Sender: FDA-Public Use
  Company Number: None

PATIENT
  Sex: Male
  Weight: 99.7913 kg

DRUGS (1)
  1. PAXIL [Suspect]
     Indication: BIPOLAR DISORDER
     Dosage: 10 MG 1 PER DAY PO
     Route: 048
     Dates: start: 20060401, end: 20060610

REACTIONS (52)
  - ABDOMINAL PAIN [None]
  - ABDOMINAL PAIN UPPER [None]
  - ABNORMAL DREAMS [None]
  - ANGER [None]
  - ANOREXIA [None]
  - BRUXISM [None]
  - CHEST PAIN [None]
  - CHILLS [None]
  - CONVULSION [None]
  - CRYING [None]
  - DECREASED APPETITE [None]
  - DEPERSONALISATION [None]
  - DIARRHOEA [None]
  - DISTURBANCE IN ATTENTION [None]
  - DRUG WITHDRAWAL SYNDROME [None]
  - DRY SKIN [None]
  - DYSARTHRIA [None]
  - DYSPEPSIA [None]
  - DYSPHAGIA [None]
  - EMOTIONAL DISORDER [None]
  - EYE PAIN [None]
  - EYE SWELLING [None]
  - FEAR [None]
  - FEELING ABNORMAL [None]
  - FEMALE ORGASMIC DISORDER [None]
  - GASTROOESOPHAGEAL REFLUX DISEASE [None]
  - HALLUCINATION [None]
  - HEADACHE [None]
  - HOT FLUSH [None]
  - HYPERACUSIS [None]
  - HYPERSENSITIVITY [None]
  - HYPOAESTHESIA [None]
  - IRRITABILITY [None]
  - MEMORY IMPAIRMENT [None]
  - MENSTRUATION IRREGULAR [None]
  - MOOD SWINGS [None]
  - MUSCLE SPASMS [None]
  - MUSCLE TWITCHING [None]
  - MYALGIA [None]
  - PALPITATIONS [None]
  - PANIC ATTACK [None]
  - PARAESTHESIA [None]
  - PRURITUS [None]
  - PSYCHOTIC DISORDER [None]
  - RASH [None]
  - SENSATION OF FOREIGN BODY [None]
  - SKIN EXFOLIATION [None]
  - SKIN IRRITATION [None]
  - SPEECH DISORDER [None]
  - SUICIDAL IDEATION [None]
  - TINNITUS [None]
  - VISION BLURRED [None]
